FAERS Safety Report 24984874 (Version 2)
Quarter: 2025Q2

REPORT INFORMATION
  Report Type: Spontaneous
  Country: US (occurrence: US)
  Receive Date: 20250219
  Receipt Date: 20250505
  Transmission Date: 20250716
  Serious: No
  Sender: ARS PHARMACEUTICALS OPERATIONS, INC.
  Company Number: US-ARS PHARMACEUTICALS OPERATIONS, INC.-2025ARP00007

PATIENT
  Age: 56 Year
  Sex: Female

DRUGS (1)
  1. NEFFY [Suspect]
     Active Substance: EPINEPHRINE
     Indication: Hypersensitivity
     Route: 045
     Dates: start: 20241209, end: 20241209

REACTIONS (2)
  - Product delivery mechanism issue [Not Recovered/Not Resolved]
  - No adverse event [Recovered/Resolved]

NARRATIVE: CASE EVENT DATE: 20241209
